FAERS Safety Report 24225042 (Version 1)
Quarter: 2024Q3

REPORT INFORMATION
  Report Type: Report from Study
  Country: US (occurrence: None)
  Receive Date: 20240820
  Receipt Date: 20240820
  Transmission Date: 20241017
  Serious: Yes (Other)
  Sender: ASTRAZENECA
  Company Number: 2022A252694

PATIENT
  Sex: Female

DRUGS (2)
  1. TAGRISSO [Suspect]
     Active Substance: OSIMERTINIB
     Indication: Lung carcinoma cell type unspecified stage 0
     Route: 048
  2. COVID VACCINE [Concomitant]

REACTIONS (20)
  - Cataract [Unknown]
  - Condition aggravated [Unknown]
  - Ligament sprain [Not Recovered/Not Resolved]
  - Urticaria [Recovering/Resolving]
  - Impaired healing [Not Recovered/Not Resolved]
  - Gastrointestinal disorder [Recovering/Resolving]
  - Rash [Recovering/Resolving]
  - Anxiety [Unknown]
  - Dizziness [Unknown]
  - Ocular discomfort [Unknown]
  - Blood sodium decreased [Unknown]
  - Food craving [Unknown]
  - Weight gain poor [Unknown]
  - Decreased appetite [Not Recovered/Not Resolved]
  - Taste disorder [Not Recovered/Not Resolved]
  - Memory impairment [Unknown]
  - Tendonitis [Unknown]
  - Onychoclasis [Unknown]
  - Visual acuity reduced [Unknown]
  - Product dose omission issue [Unknown]
